FAERS Safety Report 18129052 (Version 1)
Quarter: 2020Q3

REPORT INFORMATION
  Report Type: Spontaneous
  Country: US (occurrence: US)
  Receive Date: 20200806
  Receipt Date: 20200806
  Transmission Date: 20201103
  Serious: No
  Sender: FDA-Public Use
  Company Number: None

PATIENT
  Age: 53 Year
  Sex: Female
  Weight: 58.51 kg

DRUGS (2)
  1. METHOTREXATE INJ 50MG/2ML MDV, 50MG/2ML [Suspect]
     Active Substance: METHOTREXATE
     Indication: OSTEOARTHRITIS
     Dosage: INJECT 0.7ML (17.5MG) SUBCUTANELUSLY ONCE WEEKLY  ON THE SAME DAY EACH WEEK  AS DIRECTED
     Route: 058
     Dates: start: 202008
  2. METHOTREXATE INJ 50MG/2ML MDV, 50MG/2ML [Suspect]
     Active Substance: METHOTREXATE
     Indication: SPINAL DISORDER
     Dosage: INJECT 0.7ML (17.5MG) SUBCUTANELUSLY ONCE WEEKLY  ON THE SAME DAY EACH WEEK  AS DIRECTED
     Route: 058
     Dates: start: 202008

REACTIONS (1)
  - COVID-19 [None]
